FAERS Safety Report 5892847-X (Version None)
Quarter: 2008Q3

REPORT INFORMATION
  Report Type: 
  Country: None (occurrence: None)
  Receive Date: 20080923
  Receipt Date: 20080519
  Transmission Date: 20090109
  Serious: No
  Sender: FDA-Public Use
  Company Number: US-BAYER-200823688NA

PATIENT
  Age: 53 Year
  Sex: Female
  Weight: 86 kg

DRUGS (2)
  1. CLIMARA [Suspect]
     Indication: HORMONE REPLACEMENT THERAPY
     Route: 062
  2. MEDICATION FOR INTERSTITIAL CYSTITIS [Concomitant]
     Indication: CYSTITIS INTERSTITIAL

REACTIONS (2)
  - ABDOMINAL PAIN UPPER [None]
  - EPIGASTRIC DISCOMFORT [None]
